FAERS Safety Report 24527237 (Version 1)
Quarter: 2024Q4

REPORT INFORMATION
  Report Type: Report from Study
  Country: US (occurrence: US)
  Receive Date: 20241021
  Receipt Date: 20241021
  Transmission Date: 20250115
  Serious: No
  Sender: ROCHE
  Company Number: US-ROCHE-3510977

PATIENT
  Age: 46 Year
  Sex: Female

DRUGS (1)
  1. COTELLIC [Suspect]
     Active Substance: COBIMETINIB
     Indication: Histiocytosis
     Route: 048

REACTIONS (4)
  - Pruritus [Unknown]
  - Swelling [Unknown]
  - Blister [Unknown]
  - Gingival bleeding [Unknown]
